FAERS Safety Report 10795137 (Version 1)
Quarter: 2015Q1

REPORT INFORMATION
  Report Type: Spontaneous
  Country: US (occurrence: US)
  Receive Date: 20150214
  Receipt Date: 20150214
  Transmission Date: 20150721
  Serious: No
  Sender: FDA-Public Use
  Company Number: US-GLAXOSMITHKLINE-A1074382A

PATIENT

DRUGS (3)
  1. LAMICTAL [Suspect]
     Active Substance: LAMOTRIGINE
     Indication: AFFECTIVE DISORDER
     Route: 048
     Dates: start: 2012
  2. OTHER MEDICATIONS [Concomitant]
     Active Substance: UNSPECIFIED INGREDIENT
  3. TRILEPTAL [Concomitant]
     Active Substance: OXCARBAZEPINE

REACTIONS (5)
  - Fatigue [Unknown]
  - Allergy to chemicals [Unknown]
  - Restless legs syndrome [Not Recovered/Not Resolved]
  - Somnolence [Unknown]
  - Drug administration error [Unknown]

NARRATIVE: CASE EVENT DATE: 20140419
